FAERS Safety Report 10157542 (Version 2)
Quarter: 2015Q2

REPORT INFORMATION
  Report Type: Spontaneous
  Country: IN (occurrence: IN)
  Receive Date: 20140507
  Receipt Date: 20150601
  Transmission Date: 20150821
  Serious: Yes (Hospitalization)
  Sender: FDA-Public Use
  Company Number: PHHY2014IN054401

PATIENT
  Age: 21 Year
  Sex: Male

DRUGS (5)
  1. PYRAZINAMIDE. [Concomitant]
     Active Substance: PYRAZINAMIDE
     Indication: MENINGITIS TUBERCULOUS
     Dosage: 1500 MG, QD
     Route: 065
  2. ETHAMBUTOL [Concomitant]
     Active Substance: ETHAMBUTOL HYDROCHLORIDE
     Indication: MENINGITIS TUBERCULOUS
     Dosage: 800 MG, QD
     Route: 065
  3. ISONIAZID. [Suspect]
     Active Substance: ISONIAZID
     Indication: MENINGITIS TUBERCULOUS
     Dosage: 300 MG, QD
     Route: 065
  4. RIFAMPICIN [Concomitant]
     Active Substance: RIFAMPIN
     Indication: MENINGITIS TUBERCULOUS
     Dosage: 450 MG, QD
     Route: 065
  5. PHENYTOIN. [Interacting]
     Active Substance: PHENYTOIN
     Indication: GENERALISED TONIC-CLONIC SEIZURE
     Dosage: 300 MG, QD IN DIVIDED DOSES
     Route: 065

REACTIONS (15)
  - Swelling face [Recovering/Resolving]
  - Drug interaction [Unknown]
  - Nystagmus [Recovering/Resolving]
  - Liver function test abnormal [Recovering/Resolving]
  - Rash macular [Recovering/Resolving]
  - Vomiting [Recovering/Resolving]
  - Urine output decreased [Recovering/Resolving]
  - Vision blurred [Recovering/Resolving]
  - Lip swelling [Recovering/Resolving]
  - Gait disturbance [Recovering/Resolving]
  - Hepatitis [Recovering/Resolving]
  - Toxicity to various agents [Recovering/Resolving]
  - Urinary incontinence [Recovering/Resolving]
  - Drug level increased [Unknown]
  - Ataxia [Recovering/Resolving]
